FAERS Safety Report 23862377 (Version 2)
Quarter: 2024Q2

REPORT INFORMATION
  Report Type: Spontaneous
  Country: GB (occurrence: GB)
  Receive Date: 20240516
  Receipt Date: 20240523
  Transmission Date: 20240716
  Serious: Yes (Hospitalization, Other)
  Sender: FDA-Public Use
  Company Number: GB-AMGEN-GBRSP2024094995

PATIENT
  Sex: Male

DRUGS (1)
  1. ARANESP [Suspect]
     Active Substance: DARBEPOETIN ALFA
     Indication: Renal failure
     Dosage: 80 MICROGRAM/0.4ML, Q4WK
     Route: 058

REACTIONS (2)
  - Malaise [Unknown]
  - Neoplasm malignant [Unknown]
